FAERS Safety Report 7896977-2 (Version None)
Quarter: 2011Q4

REPORT INFORMATION
  Report Type: 
  Country: None (occurrence: None)
  Receive Date: 20111107
  Receipt Date: 20111104
  Transmission Date: 20120403
  Serious: No
  Sender: FDA-Public Use
  Company Number: US-PFIZER INC-2011270824

PATIENT
  Sex: Female
  Weight: 88.889 kg

DRUGS (3)
  1. SPIRONOLACTONE [Suspect]
     Indication: ACNE
     Dosage: 50 MG, 2X/DAY
     Route: 048
     Dates: start: 20110804
  2. LIPITOR [Suspect]
     Indication: BLOOD CHOLESTEROL INCREASED
     Dosage: 10 MG, 1X/DAY
     Route: 048
     Dates: start: 20111024
  3. ZOLOFT [Concomitant]
     Indication: DEPRESSION
     Dosage: UNK

REACTIONS (1)
  - NIPPLE PAIN [None]
